FAERS Safety Report 8560993 (Version 2)
Quarter: 2014Q2

REPORT INFORMATION
  Report Type: Spontaneous
  Country: US (occurrence: US)
  Receive Date: 20120514
  Receipt Date: 20140411
  Transmission Date: 20141212
  Serious: Yes (Hospitalization)
  Sender: FDA-Public Use
  Company Number: US-GLAXOSMITHKLINE-A0866404A

PATIENT
  Age: 42 Year
  Sex: Male
  Weight: 159.5 kg

DRUGS (3)
  1. AVANDIA [Suspect]
     Indication: DIABETES MELLITUS
     Dosage: 8MG PER DAY
     Route: 048
     Dates: start: 20050609, end: 20070529
  2. NIFEDIPINE [Concomitant]
  3. LISINOPRIL [Concomitant]

REACTIONS (2)
  - Myocardial infarction [Recovering/Resolving]
  - Myocardial ischaemia [Unknown]
